FAERS Safety Report 7704849-9 (Version None)
Quarter: 2011Q3

REPORT INFORMATION
  Report Type: 
  Country: None (occurrence: None)
  Receive Date: 20110823
  Receipt Date: 20110822
  Transmission Date: 20111222
  Serious: Yes (Other)
  Sender: FDA-Public Use
  Company Number: US-PFIZER INC-2011194725

PATIENT
  Sex: Female
  Weight: 54.422 kg

DRUGS (1)
  1. ZOLOFT [Suspect]
     Indication: DEPRESSION
     Dosage: 100MG
     Route: 048
     Dates: start: 20110101, end: 20110819

REACTIONS (3)
  - CRYING [None]
  - VISION BLURRED [None]
  - TREMOR [None]
